FAERS Safety Report 19129612 (Version 19)
Quarter: 2023Q1

REPORT INFORMATION
  Report Type: Report from Study
  Country: BR (occurrence: BR)
  Receive Date: 20210413
  Receipt Date: 20230330
  Transmission Date: 20230417
  Serious: Yes (Hospitalization, Other)
  Sender: FDA-Public Use
  Company Number: NVSC2021BR077550

PATIENT
  Age: 62 Year
  Sex: Female

DRUGS (19)
  1. KISQALI [Suspect]
     Active Substance: RIBOCICLIB
     Indication: Product used for unknown indication
     Dosage: UNK DOSAGE FORM
     Route: 065
     Dates: start: 20210323
  2. KISQALI [Suspect]
     Active Substance: RIBOCICLIB
     Dosage: 3 DOSAGE FORM, QD (1 DF IN MORNING AND 2 DOSAGE FORM IN THE NIGHT)
     Route: 065
     Dates: start: 20210324
  3. KISQALI [Suspect]
     Active Substance: RIBOCICLIB
     Dosage: 1 DOSAGE FORM, BID 1 TABLET IN THE MORNING AND 1 IN THE NIGHT
     Route: 065
  4. KISQALI [Suspect]
     Active Substance: RIBOCICLIB
     Dosage: 1 DOSAGE FORM, TID 1 TABLET IN BREAKFAST, LUNCH AND DINNER
     Route: 065
  5. KISQALI [Suspect]
     Active Substance: RIBOCICLIB
     Dosage: UNK, BID
     Route: 065
     Dates: start: 20210324
  6. KISQALI [Suspect]
     Active Substance: RIBOCICLIB
     Dosage: 3 DOSAGE FORM
     Route: 065
  7. KISQALI [Suspect]
     Active Substance: RIBOCICLIB
     Dosage: 3 DOSAGE FORM (IN USE)
     Route: 065
     Dates: start: 20210324
  8. KISQALI [Suspect]
     Active Substance: RIBOCICLIB
     Dosage: 3 DOSAGE FORM (IN USE)
     Route: 065
     Dates: start: 20210324
  9. KISQALI [Suspect]
     Active Substance: RIBOCICLIB
     Dosage: 3 DOSAGE FORM QD (1 IN THE MORNING, 2 IN THE NIGHT)
     Route: 065
     Dates: start: 20210324
  10. KISQALI [Suspect]
     Active Substance: RIBOCICLIB
     Dosage: UNK
     Route: 065
     Dates: start: 20210324
  11. KISQALI [Suspect]
     Active Substance: RIBOCICLIB
     Dosage: 3 DOSAGE FORM
     Route: 065
  12. OLANZAPINE [Suspect]
     Active Substance: OLANZAPINE
     Indication: Product used for unknown indication
     Dosage: UNK
     Route: 065
  13. FULVESTRANT [Concomitant]
     Active Substance: FULVESTRANT
     Indication: Product used for unknown indication
     Dosage: UNK UNK, Q2W
     Route: 065
     Dates: start: 20210323
  14. PRISTIQ EXTENDED-RELEASE [Concomitant]
     Active Substance: DESVENLAFAXINE SUCCINATE
     Indication: Product used for unknown indication
     Dosage: UNK
     Route: 065
  15. QUETIAPINE FUMARATE [Concomitant]
     Active Substance: QUETIAPINE FUMARATE
     Indication: Product used for unknown indication
     Dosage: UNK (A MONTH AGO)/(IN USE)
     Route: 065
  16. ALPRAZOLAM [Concomitant]
     Active Substance: ALPRAZOLAM
     Indication: Product used for unknown indication
     Dosage: UNK (IN USE)
     Route: 065
     Dates: start: 202104
  17. SULPIRIDE [Concomitant]
     Active Substance: SULPIRIDE
     Indication: Product used for unknown indication
     Dosage: UNK
     Route: 065
  18. DAPAGLIFLOZIN [Concomitant]
     Active Substance: DAPAGLIFLOZIN
     Indication: Product used for unknown indication
     Dosage: UNK
     Route: 065
  19. GLIFAGE [Concomitant]
     Active Substance: METFORMIN HYDROCHLORIDE
     Indication: Product used for unknown indication
     Dosage: UNK
     Route: 065

REACTIONS (48)
  - Abdominal discomfort [Recovered/Resolved]
  - Anaemia [Not Recovered/Not Resolved]
  - Osteonecrosis [Unknown]
  - Tooth disorder [Unknown]
  - Metastases to bone [Unknown]
  - Dysentery [Recovered/Resolved]
  - Gastrointestinal pain [Not Recovered/Not Resolved]
  - Fatigue [Not Recovered/Not Resolved]
  - Abdominal pain [Not Recovered/Not Resolved]
  - Aphthous ulcer [Not Recovered/Not Resolved]
  - Decreased appetite [Not Recovered/Not Resolved]
  - Dry skin [Recovering/Resolving]
  - Chills [Unknown]
  - Feeling of despair [Unknown]
  - General physical health deterioration [Unknown]
  - Motion sickness [Unknown]
  - Fall [Unknown]
  - Abdominal pain upper [Unknown]
  - Muscular weakness [Not Recovered/Not Resolved]
  - Contusion [Unknown]
  - Speech disorder [Not Recovered/Not Resolved]
  - Swelling [Unknown]
  - Appetite disorder [Unknown]
  - Discouragement [Not Recovered/Not Resolved]
  - Gastrointestinal disorder [Unknown]
  - Dysgeusia [Unknown]
  - Malaise [Unknown]
  - Nausea [Unknown]
  - Feeding disorder [Unknown]
  - Impaired healing [Not Recovered/Not Resolved]
  - Depression [Unknown]
  - Toothache [Not Recovered/Not Resolved]
  - Mobility decreased [Unknown]
  - Anxiety [Unknown]
  - Arthralgia [Unknown]
  - Tooth abscess [Unknown]
  - Vomiting [Recovered/Resolved]
  - Diarrhoea [Recovered/Resolved]
  - Influenza [Recovering/Resolving]
  - Malaise [Recovered/Resolved]
  - Dysphonia [Recovering/Resolving]
  - Somnolence [Not Recovered/Not Resolved]
  - Asthenia [Not Recovered/Not Resolved]
  - Weight increased [Recovering/Resolving]
  - Cough [Recovering/Resolving]
  - Product administration error [Not Recovered/Not Resolved]
  - Product use issue [Unknown]
  - Off label use [Unknown]

NARRATIVE: CASE EVENT DATE: 20210301
